FAERS Safety Report 19027329 (Version 1)
Quarter: 2021Q1

REPORT INFORMATION
  Report Type: Spontaneous
  Country: MX (occurrence: MX)
  Receive Date: 20210318
  Receipt Date: 20210318
  Transmission Date: 20210420
  Serious: Yes (Death, Other)
  Sender: FDA-Public Use
  Company Number: MX-PFIZER INC-2021289566

PATIENT
  Age: 74 Year
  Sex: Female

DRUGS (1)
  1. BOSUTINIB [Suspect]
     Active Substance: BOSUTINIB
     Indication: CHRONIC MYELOID LEUKAEMIA
     Dosage: 500 MG, DAILY
     Route: 048
     Dates: start: 20210226

REACTIONS (5)
  - Pancytopenia [Unknown]
  - Sepsis [Fatal]
  - Myelopathy [Unknown]
  - Infection [Fatal]
  - Septic shock [Fatal]
